FAERS Safety Report 4727435-1 (Version None)
Quarter: 2005Q3

REPORT INFORMATION
  Report Type: 
  Country: None (occurrence: None)
  Receive Date: 20050725
  Receipt Date: 20050725
  Transmission Date: 20060218
  Serious: Yes (Other)
  Sender: FDA-Public Use
  Company Number: None

PATIENT
  Age: 79 Year
  Sex: Male
  Weight: 74.8435 kg

DRUGS (1)
  1. TEQUIN [Suspect]
     Indication: PNEUMONIA
     Dosage: IV  INTRAVENOU;    ORAL   ORAL
     Route: 042
     Dates: start: 20041225, end: 20050101

REACTIONS (7)
  - ABNORMAL BEHAVIOUR [None]
  - DIZZINESS [None]
  - HALLUCINATION, VISUAL [None]
  - LOSS OF CONSCIOUSNESS [None]
  - PALPITATIONS [None]
  - PNEUMONIA [None]
  - REFUSAL OF TREATMENT BY PATIENT [None]
